FAERS Safety Report 14022064 (Version 4)
Quarter: 2018Q2

REPORT INFORMATION
  Report Type: Report from Study
  Country: US (occurrence: US)
  Receive Date: 20170928
  Receipt Date: 20180514
  Transmission Date: 20180711
  Serious: Yes (Other)
  Sender: FDA-Public Use
  Company Number: US-ACTELION-A-NJ2017-154804

PATIENT
  Age: 68 Year
  Sex: Female

DRUGS (12)
  1. AZATHIOPRINE. [Concomitant]
     Active Substance: AZATHIOPRINE
  2. NOVOLOG [Concomitant]
     Active Substance: INSULIN ASPART
  3. GABAPENTIN. [Concomitant]
     Active Substance: GABAPENTIN
  4. HUMALOG [Concomitant]
     Active Substance: INSULIN LISPRO
  5. HYDRALAZINE [Concomitant]
     Active Substance: HYDRALAZINE HYDROCHLORIDE
  6. LANTUS [Concomitant]
     Active Substance: INSULIN GLARGINE
  7. PLAVIX [Concomitant]
     Active Substance: CLOPIDOGREL BISULFATE
  8. METOPROLOL. [Concomitant]
     Active Substance: METOPROLOL
  9. VITAMIN D3 [Concomitant]
     Active Substance: CHOLECALCIFEROL
  10. OPSUMIT [Suspect]
     Active Substance: MACITENTAN
     Indication: PULMONARY ARTERIAL HYPERTENSION
     Dosage: 10 MG, QD
     Route: 048
     Dates: start: 201704
  11. FUROSEMIDE. [Concomitant]
     Active Substance: FUROSEMIDE
  12. POTASSIUM [Concomitant]
     Active Substance: POTASSIUM

REACTIONS (17)
  - Contusion [Unknown]
  - Headache [Not Recovered/Not Resolved]
  - Cardiac disorder [Not Recovered/Not Resolved]
  - Joint injury [Not Recovered/Not Resolved]
  - Cataract [Not Recovered/Not Resolved]
  - Dizziness [Recovered/Resolved]
  - Blood pressure increased [Not Recovered/Not Resolved]
  - Drug dose omission [Not Recovered/Not Resolved]
  - Visual impairment [Not Recovered/Not Resolved]
  - Cataract operation [Not Recovered/Not Resolved]
  - Pain [Not Recovered/Not Resolved]
  - Cardiomegaly [Not Recovered/Not Resolved]
  - Fall [Not Recovered/Not Resolved]
  - Constipation [Recovered/Resolved]
  - Chest pain [Not Recovered/Not Resolved]
  - Eye operation [Not Recovered/Not Resolved]
  - Dyspnoea [Not Recovered/Not Resolved]

NARRATIVE: CASE EVENT DATE: 201705
